FAERS Safety Report 9785822 (Version 2)
Quarter: 2014Q2

REPORT INFORMATION
  Report Type: Spontaneous
  Country: US (occurrence: US)
  Receive Date: 20131227
  Receipt Date: 20140512
  Transmission Date: 20141212
  Serious: No
  Sender: FDA-Public Use
  Company Number: US-BAYER-2013-157248

PATIENT
  Age: 31 Year
  Sex: Female
  Weight: 90 kg

DRUGS (2)
  1. MIRENA [Suspect]
     Indication: CONTRACEPTION
     Dosage: 20 MCG/24HR, CONT
     Route: 015
     Dates: end: 20131219
  2. ESSURE [Suspect]
     Indication: CONTRACEPTION
     Dosage: UNK

REACTIONS (2)
  - Device difficult to use [Unknown]
  - Emotional disorder [Unknown]
